FAERS Safety Report 21327097 (Version 1)
Quarter: 2022Q3

REPORT INFORMATION
  Report Type: Spontaneous
  Country: IN (occurrence: None)
  Receive Date: 20220913
  Receipt Date: 20220913
  Transmission Date: 20221026
  Serious: Yes (Other)
  Sender: FDA-Public Use
  Company Number: IN-MICRO LABS LIMITED-ML2022-04515

PATIENT
  Age: 24 Year
  Sex: Female

DRUGS (1)
  1. MEFENAMIC ACID [Suspect]
     Active Substance: MEFENAMIC ACID
     Indication: Dysmenorrhoea
     Dosage: 500 MG

REACTIONS (1)
  - Fixed eruption [Recovered/Resolved]
